FAERS Safety Report 6240732-6 (Version None)
Quarter: 2009Q2

REPORT INFORMATION
  Report Type: 
  Country: None (occurrence: None)
  Receive Date: 20090623
  Receipt Date: 20090302
  Transmission Date: 20091009
  Serious: No
  Sender: FDA-Public Use
  Company Number: US-ASTRAZENECA-2009UW05702

PATIENT
  Sex: Female
  Weight: 52.2 kg

DRUGS (13)
  1. PULMICORT RESPULES [Suspect]
     Indication: PULMONARY FIBROSIS
     Dosage: 0.5 MG/2 ML TWICE A DAY
     Route: 055
     Dates: start: 20081101
  2. PULMICORT RESPULES [Suspect]
     Dosage: 0.5 MG/2 ML ONCE A DAY
     Route: 055
     Dates: start: 20090206
  3. ALBUTEROL [Concomitant]
  4. LEVOTHYROXINE SODIUM [Concomitant]
  5. IMDUR [Concomitant]
  6. LASIX [Concomitant]
  7. PRILOSEC [Concomitant]
  8. VITAMIN D [Concomitant]
  9. EYE CAPS [Concomitant]
  10. ASPIRIN [Concomitant]
  11. CALCIUM [Concomitant]
     Dosage: BID
  12. CENTRUM MULTIVITAMIN [Concomitant]
  13. METAMUCIL [Concomitant]

REACTIONS (2)
  - DYSPHONIA [None]
  - INCREASED UPPER AIRWAY SECRETION [None]
